FAERS Safety Report 9859638 (Version 2)
Quarter: 2014Q1

REPORT INFORMATION
  Report Type: Spontaneous
  Country: US (occurrence: US)
  Receive Date: 20140131
  Receipt Date: 20140212
  Transmission Date: 20141002
  Serious: Yes (Other)
  Sender: FDA-Public Use
  Company Number: US-PFIZER INC-2014028295

PATIENT
  Age: 59 Year
  Sex: Female
  Weight: 71.2 kg

DRUGS (7)
  1. PREMARIN [Suspect]
     Indication: MENOPAUSAL SYMPTOMS
     Dosage: 0.625 MG, 1X/DAY
     Route: 048
  2. CELEBREX [Concomitant]
     Indication: OSTEOARTHRITIS
     Dosage: 200 MG, 1X/DAY
  3. LISINOPRIL [Concomitant]
     Indication: HYPERTENSION
     Dosage: UNK
  4. LESCOL [Concomitant]
     Indication: BLOOD CHOLESTEROL ABNORMAL
     Dosage: 20 MG, 1X/DAY
  5. TRANXENE [Concomitant]
     Indication: ANXIETY
     Dosage: 7.5 MG, 1X/DAY
  6. AMITRIPTYLINE [Concomitant]
     Indication: SLEEP DISORDER
     Dosage: 50 MG, 1X/DAY
  7. LORTAB [Concomitant]
     Indication: PAIN
     Dosage: UNK, AS NEEDED

REACTIONS (1)
  - Systemic lupus erythematosus [Unknown]
